FAERS Safety Report 14546150 (Version 4)
Quarter: 2018Q2

REPORT INFORMATION
  Report Type: Spontaneous
  Country: US (occurrence: US)
  Receive Date: 20180219
  Receipt Date: 20180601
  Transmission Date: 20180711
  Serious: No
  Sender: FDA-Public Use
  Company Number: PHEH2018US006664

PATIENT
  Sex: Female

DRUGS (2)
  1. ZOFRAN ODT [Suspect]
     Active Substance: ONDANSETRON HYDROCHLORIDE
     Indication: PRODUCT USED FOR UNKNOWN INDICATION
     Route: 048
  2. ZOFRAN [Suspect]
     Active Substance: ONDANSETRON HYDROCHLORIDE
     Indication: VOMITING
     Dosage: UNK
     Route: 048
     Dates: start: 20020923, end: 200212

REACTIONS (5)
  - Maternal exposure during pregnancy [Unknown]
  - Emotional distress [Unknown]
  - Injury [Unknown]
  - Pregnancy with advanced maternal age [Unknown]
  - Product use in unapproved indication [Unknown]
